FAERS Safety Report 10723598 (Version 4)
Quarter: 2015Q3

REPORT INFORMATION
  Report Type: Report from Study
  Country: US (occurrence: US)
  Receive Date: 20150120
  Receipt Date: 20150917
  Transmission Date: 20151125
  Serious: Yes (Other)
  Sender: FDA-Public Use
  Company Number: US-SA-2014SA138508

PATIENT
  Age: 71 Year
  Sex: Female
  Weight: 63.5 kg

DRUGS (1)
  1. AUBAGIO [Suspect]
     Active Substance: TERIFLUNOMIDE
     Indication: MULTIPLE SCLEROSIS
     Route: 048
     Dates: start: 20140903

REACTIONS (17)
  - Multiple sclerosis relapse [Unknown]
  - Chest pain [Not Recovered/Not Resolved]
  - Hypoaesthesia [Recovering/Resolving]
  - Back pain [Recovered/Resolved]
  - Muscular weakness [Not Recovered/Not Resolved]
  - Tooth repair [Unknown]
  - Hypoaesthesia [Not Recovered/Not Resolved]
  - Cough [Not Recovered/Not Resolved]
  - Blood pressure decreased [Unknown]
  - Limb discomfort [Unknown]
  - Muscle spasms [Recovering/Resolving]
  - Asthenia [Unknown]
  - Weight decreased [Unknown]
  - Pneumonia [Recovering/Resolving]
  - Arthralgia [Recovered/Resolved]
  - Blood pressure increased [Recovered/Resolved]
  - Band sensation [Not Recovered/Not Resolved]

NARRATIVE: CASE EVENT DATE: 2014
